FAERS Safety Report 9247956 (Version 1)
Quarter: 2013Q2

REPORT INFORMATION
  Report Type: Spontaneous
  Country: US (occurrence: US)
  Receive Date: 20130423
  Receipt Date: 20130423
  Transmission Date: 20140414
  Serious: No
  Sender: FDA-Public Use
  Company Number: US-PFIZER INC-2013122438

PATIENT
  Age: 46 Year
  Sex: Female
  Weight: 58.5 kg

DRUGS (3)
  1. PRISTIQ [Suspect]
     Indication: ELECTROLYTE IMBALANCE
     Dosage: UNK, DAILY
  2. PRISTIQ [Suspect]
     Indication: ANXIETY
  3. PRISTIQ [Suspect]
     Indication: FATIGUE

REACTIONS (2)
  - Drug dose omission [Unknown]
  - Paraesthesia [Unknown]
